FAERS Safety Report 25086726 (Version 1)
Quarter: 2025Q1

REPORT INFORMATION
  Report Type: Spontaneous
  Country: FR (occurrence: FR)
  Receive Date: 20250318
  Receipt Date: 20250318
  Transmission Date: 20250409
  Serious: Yes (Life-Threatening)
  Sender: MERCK KGAA
  Company Number: None

PATIENT
  Age: 48 Year
  Sex: Female
  Weight: 61 kg

DRUGS (10)
  1. LEVOTHYROXINE SODIUM [Suspect]
     Active Substance: LEVOTHYROXINE SODIUM
     Indication: Hypothyroidism
     Route: 048
     Dates: start: 20241227
  2. PANTOPRAZOLE [Suspect]
     Active Substance: PANTOPRAZOLE
     Indication: Prophylaxis against gastrointestinal ulcer
     Route: 048
     Dates: start: 20241227
  3. ENTYVIO [Suspect]
     Active Substance: VEDOLIZUMAB
     Indication: Colitis
     Route: 042
     Dates: start: 20241221, end: 20250203
  4. METHYLPREDNISOLONE [Suspect]
     Active Substance: METHYLPREDNISOLONE
     Indication: Ovarian cancer
     Route: 048
     Dates: start: 20250121
  5. IMOVANE [Suspect]
     Active Substance: ZOPICLONE
     Indication: Insomnia
     Route: 048
     Dates: start: 20241227
  6. INNOHEP [Suspect]
     Active Substance: TINZAPARIN SODIUM
     Indication: Thrombosis prophylaxis
     Route: 058
  7. GABAPENTIN [Suspect]
     Active Substance: GABAPENTIN
     Indication: Pain prophylaxis
     Route: 048
     Dates: start: 20250108
  8. CLOMIPRAMINE HYDROCHLORIDE [Suspect]
     Active Substance: CLOMIPRAMINE HYDROCHLORIDE
     Indication: Antidepressant therapy
     Route: 048
     Dates: start: 20250110
  9. ACETAMINOPHEN [Suspect]
     Active Substance: ACETAMINOPHEN
     Indication: Pain
     Route: 048
     Dates: start: 20241227
  10. METOCLOPRAMIDE [Suspect]
     Active Substance: METOCLOPRAMIDE
     Indication: Antiemetic supportive care
     Route: 048
     Dates: start: 20241227

REACTIONS (1)
  - Agranulocytosis [Not Recovered/Not Resolved]

NARRATIVE: CASE EVENT DATE: 20250210
